FAERS Safety Report 5105397-5 (Version None)
Quarter: 2006Q3

REPORT INFORMATION
  Report Type: 
  Country: None (occurrence: None)
  Receive Date: 20060915
  Receipt Date: 20060906
  Transmission Date: 20061208
  Serious: Yes (Other)
  Sender: FDA-Public Use
  Company Number: PHMT2006CA01775

PATIENT
  Age: 57 Year
  Sex: Female

DRUGS (2)
  1. FEMARA [Suspect]
     Indication: BREAST CANCER
     Dosage: 2.5 MG
     Route: 048
     Dates: start: 20060101
  2. LORAZEPAM [Concomitant]

REACTIONS (2)
  - PRURITUS [None]
  - URTICARIA [None]
